FAERS Safety Report 13779497 (Version 2)
Quarter: 2017Q4

REPORT INFORMATION
  Report Type: Report from Study
  Country: None (occurrence: US)
  Receive Date: 20170721
  Receipt Date: 20171013
  Transmission Date: 20180320
  Serious: Yes (Hospitalization)
  Sender: FDA-Public Use
  Company Number: US-VIFOR (INTERNATIONAL) INC.-VIT-2017-07783

PATIENT
  Age: 67 Year
  Sex: Female

DRUGS (9)
  1. VELTASSA [Suspect]
     Active Substance: PATIROMER
     Indication: HYPERKALAEMIA
     Route: 048
     Dates: start: 20160923
  2. FUROSEMIDE. [Concomitant]
     Active Substance: FUROSEMIDE
  3. SODIUM BICARBONATE. [Concomitant]
     Active Substance: SODIUM BICARBONATE
  4. BANOPHEN [Concomitant]
     Active Substance: DIPHENHYDRAMINE HYDROCHLORIDE
  5. RENVELA [Concomitant]
     Active Substance: SEVELAMER CARBONATE
  6. CODEINE [Concomitant]
     Active Substance: CODEINE
  7. OMEPRAZOLE. [Concomitant]
     Active Substance: OMEPRAZOLE
  8. ERGOCALCIFEROL. [Concomitant]
     Active Substance: ERGOCALCIFEROL
  9. NIFEDIPINE. [Concomitant]
     Active Substance: NIFEDIPINE

REACTIONS (2)
  - Sepsis [Recovered/Resolved]
  - Abdominal pain [Recovered/Resolved]

NARRATIVE: CASE EVENT DATE: 20170621
